FAERS Safety Report 7755240-0 (Version None)
Quarter: 2011Q3

REPORT INFORMATION
  Report Type: 
  Country: None (occurrence: None)
  Receive Date: 20110913
  Receipt Date: 20110831
  Transmission Date: 20111222
  Serious: Yes (Life-Threatening, Other)
  Sender: FDA-Public Use
  Company Number: 2011S1001241

PATIENT
  Age: 69 Year
  Sex: Male

DRUGS (2)
  1. LIVALO [Suspect]
     Indication: HYPERCHOLESTEROLAEMIA
     Dosage: 1 MG;1X;PO
     Route: 048
     Dates: start: 20110729, end: 20110803
  2. ALLOPURINOL [Suspect]
     Dosage: 100 MG;BID;PO
     Route: 048
     Dates: start: 20110729, end: 20110803

REACTIONS (3)
  - DYSURIA [None]
  - CONSTIPATION [None]
  - MYALGIA [None]
